FAERS Safety Report 22627506 (Version 1)
Quarter: 2023Q2

REPORT INFORMATION
  Report Type: Spontaneous
  Country: US (occurrence: US)
  Receive Date: 20230622
  Receipt Date: 20230622
  Transmission Date: 20230722
  Serious: No
  Sender: FDA-Public Use
  Company Number: US-ELI_LILLY_AND_COMPANY-US202306013635

PATIENT
  Age: 75 Year
  Sex: Female

DRUGS (5)
  1. INSULIN LISPRO [Suspect]
     Active Substance: INSULIN LISPRO
     Indication: Type 2 diabetes mellitus
     Dosage: 10 U, UNKNOWN
     Route: 065
     Dates: start: 2022
  2. INSULIN LISPRO [Suspect]
     Active Substance: INSULIN LISPRO
     Indication: Type 2 diabetes mellitus
     Dosage: 10 U, UNKNOWN
     Route: 065
     Dates: start: 2022
  3. INSULIN LISPRO [Suspect]
     Active Substance: INSULIN LISPRO
     Dosage: 10 U, UNKNOWN
     Route: 065
  4. INSULIN LISPRO [Suspect]
     Active Substance: INSULIN LISPRO
     Dosage: 10 U, UNKNOWN
     Route: 065
  5. TOUJEO [Concomitant]
     Active Substance: INSULIN GLARGINE
     Indication: Type 2 diabetes mellitus
     Dosage: AT NIGHT
     Dates: start: 2022

REACTIONS (4)
  - Incorrect dose administered [Unknown]
  - Diabetes mellitus inadequate control [Unknown]
  - Visual impairment [Unknown]
  - Vision blurred [Unknown]

NARRATIVE: CASE EVENT DATE: 20230501
